FAERS Safety Report 25769535 (Version 4)
Quarter: 2025Q4

REPORT INFORMATION
  Report Type: Spontaneous
  Country: US (occurrence: US)
  Receive Date: 20250906
  Receipt Date: 20251105
  Transmission Date: 20260117
  Serious: Yes (Life-Threatening, Hospitalization)
  Sender: ACCORD
  Company Number: US-Accord-503225

PATIENT
  Age: 56 Year
  Sex: Female
  Weight: 76.2 kg

DRUGS (12)
  1. FLUOROURACIL [Suspect]
     Active Substance: FLUOROURACIL
     Indication: Adenocarcinoma of colon
     Dosage: 2400 MG/M2, Q3WEEKS, IV DRIP
     Route: 042
     Dates: start: 20250804, end: 20250804
  2. IRINOTECAN [Suspect]
     Active Substance: IRINOTECAN
     Indication: Adenocarcinoma of colon
     Dosage: 180 MG/M2, Q3WEEKS, IV DRIP
     Route: 042
     Dates: start: 20250804, end: 20250804
  3. LEUCOVORIN [Suspect]
     Active Substance: LEUCOVORIN\LEUCOVORIN CALCIUM
     Indication: Adenocarcinoma of colon
     Dosage: 400 MG/M2, Q3WEEKS, IV DRIP
     Route: 042
     Dates: start: 20250804, end: 20250804
  4. AMLODIPINE [Concomitant]
     Active Substance: AMLODIPINE BESYLATE
     Dates: start: 2019
  5. FAMOTIDINE [Concomitant]
     Active Substance: FAMOTIDINE
     Dates: start: 2019
  6. GABAPENTIN [Concomitant]
     Active Substance: GABAPENTIN
     Dates: start: 20240522
  7. CARVEDILOL [Concomitant]
     Active Substance: CARVEDILOL
     Dates: start: 20240905
  8. AMBIEN [Concomitant]
     Active Substance: ZOLPIDEM TARTRATE
     Dates: start: 20250211
  9. FLUOCINOLONE [Concomitant]
     Active Substance: FLUOCINOLONE
     Dates: start: 202504
  10. NYSTATIN W/TRIAMCINOLONE [Concomitant]
     Dates: start: 202504
  11. ONDANSETRON [Concomitant]
     Active Substance: ONDANSETRON
     Dates: start: 20250414
  12. NEUPOGEN [Concomitant]
     Active Substance: FILGRASTIM
     Dates: start: 20250413, end: 20250813

REACTIONS (2)
  - Febrile neutropenia [Recovered/Resolved]
  - Sinus tachycardia [Unknown]

NARRATIVE: CASE EVENT DATE: 20250801
